FAERS Safety Report 6103970-9 (Version None)
Quarter: 2009Q1

REPORT INFORMATION
  Report Type: 
  Country: None (occurrence: None)
  Receive Date: 20090305
  Receipt Date: 20090227
  Transmission Date: 20090719
  Serious: Yes (Hospitalization)
  Sender: FDA-Public Use
  Company Number: B0562536A

PATIENT
  Age: 47 Year
  Sex: Male
  Weight: 55 kg

DRUGS (1)
  1. ARIXTRA [Suspect]
     Dosage: 2.5MG PER DAY
     Route: 058
     Dates: start: 20081210, end: 20081223

REACTIONS (4)
  - HAEMATOMA [None]
  - INDURATION [None]
  - RED BLOOD CELL COUNT DECREASED [None]
  - SHOCK [None]
